FAERS Safety Report 19755248 (Version 1)
Quarter: 2021Q3

REPORT INFORMATION
  Report Type: Spontaneous
  Country: US (occurrence: US)
  Receive Date: 20210827
  Receipt Date: 20210827
  Transmission Date: 20211014
  Serious: Yes (Hospitalization)
  Sender: FDA-Public Use
  Company Number: None

PATIENT
  Age: 54 Year
  Sex: Male
  Weight: 89.3 kg

DRUGS (8)
  1. AZITHROMYCIN ANHYDROUS. [Concomitant]
     Active Substance: AZITHROMYCIN ANHYDROUS
  2. ENOXAPARIN [Concomitant]
     Active Substance: ENOXAPARIN
  3. BENZONATATE. [Concomitant]
     Active Substance: BENZONATATE
  4. ACETAMINOPHEN. [Concomitant]
     Active Substance: ACETAMINOPHEN
  5. FAMOTIDINE. [Concomitant]
     Active Substance: FAMOTIDINE
  6. BARICITINIB. [Suspect]
     Active Substance: BARICITINIB
     Indication: COVID-19
     Route: 048
  7. MELATONIN [Concomitant]
     Active Substance: MELATONIN
  8. DEXAMETHASONE. [Concomitant]
     Active Substance: DEXAMETHASONE

REACTIONS (2)
  - Therapy non-responder [None]
  - Otitis externa [None]

NARRATIVE: CASE EVENT DATE: 20210823
